FAERS Safety Report 18450889 (Version 1)
Quarter: 2020Q4

REPORT INFORMATION
  Report Type: Spontaneous
  Country: US (occurrence: US)
  Receive Date: 20201102
  Receipt Date: 20201102
  Transmission Date: 20210114
  Serious: Yes (Other)
  Sender: FDA-Public Use
  Company Number: US-COLGATE PALMOLIVE COMPANY-20201002059

PATIENT
  Sex: Female

DRUGS (3)
  1. COLGATE MAX FRESH CLEAN MINT [Suspect]
     Active Substance: SODIUM FLUORIDE
     Dosage: UNK
     Dates: start: 20201018, end: 202010
  2. COLGATE SENSITIVE WHITENING FRESH MINT [Suspect]
     Active Substance: POTASSIUM NITRATE\SODIUM FLUORIDE
     Dosage: UNK
     Dates: start: 20201018, end: 202010
  3. COLGATE SPARKLING WHITE MINT ZING [Suspect]
     Active Substance: SODIUM MONOFLUOROPHOSPHATE
     Dosage: UNK
     Dates: start: 20201018, end: 202010

REACTIONS (9)
  - Loss of personal independence in daily activities [Unknown]
  - Pharyngeal injury [Unknown]
  - Mouth injury [Unknown]
  - Face injury [Unknown]
  - Tongue injury [Unknown]
  - Speech disorder [Unknown]
  - Panic attack [Unknown]
  - Product contamination physical [Unknown]
  - Mouth haemorrhage [Unknown]

NARRATIVE: CASE EVENT DATE: 20201018
